FAERS Safety Report 9814504 (Version 1)
Quarter: 2014Q1

REPORT INFORMATION
  Report Type: Spontaneous
  Country: US (occurrence: US)
  Receive Date: 20140113
  Receipt Date: 20140113
  Transmission Date: 20141002
  Serious: Yes (Death)
  Sender: FDA-Public Use
  Company Number: US-PFIZER INC-2014006438

PATIENT
  Age: 76 Year
  Sex: Female

DRUGS (2)
  1. ALPRAZOLAM [Suspect]
     Dosage: UNK
  2. ACETAMINOPHEN/HYDROCODONE [Suspect]
     Dosage: UNK

REACTIONS (1)
  - Completed suicide [Fatal]
